FAERS Safety Report 16561194 (Version 2)
Quarter: 2019Q3

REPORT INFORMATION
  Report Type: Spontaneous
  Country: ES (occurrence: ES)
  Receive Date: 20190711
  Receipt Date: 20190806
  Transmission Date: 20191004
  Serious: Yes (Other)
  Sender: FDA-Public Use
  Company Number: ES-TOLMAR, INC.-TOLG20192311

PATIENT
  Age: 72 Year
  Sex: Female

DRUGS (3)
  1. METRONIDAZOLE. [Suspect]
     Active Substance: METRONIDAZOLE
     Indication: LIVER ABSCESS
     Dosage: 500 MG
     Route: 042
  2. LOW-MOLECULAR-WEIGHT HEPARIN [Concomitant]
     Active Substance: UNSPECIFIED INGREDIENT
     Indication: DEEP VEIN THROMBOSIS
     Dosage: UNKNOWN
     Route: 065
  3. METRONIDAZOLE. [Suspect]
     Active Substance: METRONIDAZOLE
     Dosage: 500 MG
     Route: 048

REACTIONS (15)
  - Hyperreflexia [Recovering/Resolving]
  - Gait disturbance [Recovering/Resolving]
  - Coma [Recovering/Resolving]
  - Dysarthria [Recovering/Resolving]
  - Hand deformity [Recovered/Resolved]
  - Aphasia [Recovering/Resolving]
  - Hemiparesis [Recovering/Resolving]
  - Depressed level of consciousness [Recovering/Resolving]
  - Cogwheel rigidity [Recovering/Resolving]
  - Muscular weakness [Recovering/Resolving]
  - Dystonia [Recovered/Resolved]
  - Toxic encephalopathy [Recovering/Resolving]
  - Somnolence [Recovering/Resolving]
  - Bradyphrenia [Recovering/Resolving]
  - Speech disorder [Recovering/Resolving]
